FAERS Safety Report 20292284 (Version 1)
Quarter: 2022Q1

REPORT INFORMATION
  Report Type: Spontaneous
  Country: US (occurrence: US)
  Receive Date: 20220104
  Receipt Date: 20220104
  Transmission Date: 20220423
  Serious: Yes (Other)
  Sender: FDA-Public Use
  Company Number: US-PFIZER INC-202101863497

PATIENT
  Sex: Female

DRUGS (1)
  1. CHANTIX [Suspect]
     Active Substance: VARENICLINE TARTRATE
     Dosage: 2 DF
     Dates: start: 20200105

REACTIONS (3)
  - Loss of consciousness [Unknown]
  - Facial bones fracture [Unknown]
  - Eye contusion [Unknown]

NARRATIVE: CASE EVENT DATE: 20200106
